FAERS Safety Report 9719999 (Version 3)
Quarter: 2014Q1

REPORT INFORMATION
  Report Type: Spontaneous
  Country: US (occurrence: US)
  Receive Date: 20131128
  Receipt Date: 20140111
  Transmission Date: 20141002
  Serious: Yes (Hospitalization)
  Sender: FDA-Public Use
  Company Number: US-009507513-1311USA008819

PATIENT
  Sex: Male

DRUGS (4)
  1. TEMODAR [Suspect]
     Indication: GLIOBLASTOMA MULTIFORME
     Dosage: 140 MG, QD, 42 DAY COURSE
     Route: 048
     Dates: start: 20130903, end: 20131015
  2. TEMODAR [Suspect]
     Indication: GLIOBLASTOMA MULTIFORME
     Dosage: 2.5 MG, QD, 42 DAY COURSE
     Route: 048
     Dates: start: 20130903, end: 20131015
  3. FLUCONAZOLE [Concomitant]
     Dosage: UNK FOR 5 DAYS
     Dates: start: 201309, end: 2013
  4. AVASTIN (SIMVASTATIN) [Concomitant]
     Dosage: UNK
     Dates: start: 2013

REACTIONS (3)
  - Vanishing bile duct syndrome [Not Recovered/Not Resolved]
  - Bile duct obstruction [Not Recovered/Not Resolved]
  - Liver injury [Not Recovered/Not Resolved]
